FAERS Safety Report 8995819 (Version 2)
Quarter: 2013Q2

REPORT INFORMATION
  Report Type: Spontaneous
  Country: US (occurrence: US)
  Receive Date: 20130103
  Receipt Date: 20130404
  Transmission Date: 20140414
  Serious: Yes (Other)
  Sender: FDA-Public Use
  Company Number: PHEH2012US024641

PATIENT
  Age: 56 Year
  Sex: Male
  Weight: 77.98 kg

DRUGS (8)
  1. GILENYA [Suspect]
     Indication: MULTIPLE SCLEROSIS
     Dosage: 0.5 MG, BID
     Route: 048
     Dates: start: 20121023, end: 20121212
  2. NEXIUM 1-2-3 [Concomitant]
     Dosage: 40 MG, QD
     Route: 048
  3. ZINC [Concomitant]
  4. B-COMPLEX [Concomitant]
  5. XANAX [Concomitant]
     Dosage: 0.5 MG, PRN
     Route: 048
  6. LYRICA [Concomitant]
  7. FLONASE [Concomitant]
     Dosage: 50 MG, QD
     Route: 045
  8. FISH OIL [Concomitant]

REACTIONS (3)
  - Panic attack [Unknown]
  - Anxiety [Recovered/Resolved]
  - Malaise [Recovered/Resolved]
